FAERS Safety Report 16903807 (Version 1)
Quarter: 2019Q4

REPORT INFORMATION
  Report Type: Spontaneous
  Country: US (occurrence: US)
  Receive Date: 20191009
  Receipt Date: 20191009
  Transmission Date: 20200122
  Serious: No
  Sender: FDA-Public Use
  Company Number: None

PATIENT
  Sex: Female

DRUGS (2)
  1. OMEPROZOLE [Suspect]
     Active Substance: OMEPRAZOLE
  2. ESOMEPRAZOLE. [Suspect]
     Active Substance: ESOMEPRAZOLE MAGNESIUM

REACTIONS (3)
  - Throat irritation [None]
  - Abdominal pain [None]
  - Gastrooesophageal reflux disease [None]
